FAERS Safety Report 5956120-3 (Version None)
Quarter: 2008Q4

REPORT INFORMATION
  Report Type: 
  Country: None (occurrence: None)
  Receive Date: 20081112
  Receipt Date: 20081029
  Transmission Date: 20090506
  Serious: Yes (Death, Hospitalization)
  Sender: FDA-Public Use
  Company Number: 2008AL008826

PATIENT
  Age: 79 Year
  Sex: Female
  Weight: 70.7611 kg

DRUGS (21)
  1. DIGOXIN [Suspect]
     Dosage: 0.125MG, QD, AND QOD, PO
     Route: 048
     Dates: end: 20080217
  2. DIGOXIN [Suspect]
     Dosage: 0.25MG, QOD, PO
     Route: 048
     Dates: start: 20070725
  3. LANTUS [Concomitant]
  4. COUMADIN [Concomitant]
  5. COREG [Concomitant]
  6. LASIX [Concomitant]
  7. PRAVACHOL [Concomitant]
  8. ZAROXOLYN [Concomitant]
  9. LISINOPRIL [Concomitant]
  10. SYNTHROID [Concomitant]
  11. ASPIRIN [Concomitant]
  12. MULTI-VITAMIN [Concomitant]
  13. POTASSIUM CHLORIDE [Concomitant]
  14. K-DUR [Concomitant]
  15. HUMALOG [Concomitant]
  16. METOLAZONE [Concomitant]
  17. PLAVIX [Concomitant]
  18. LEVOTHYROXINE SODIUM [Concomitant]
  19. PRILOSEC [Concomitant]
  20. ZOCOR [Concomitant]
  21. LOVENOX [Concomitant]

REACTIONS (30)
  - AORTIC VALVE REPLACEMENT [None]
  - ATRIAL FIBRILLATION [None]
  - BRAIN DEATH [None]
  - CARDIAC DISORDER [None]
  - CARDIAC FAILURE CONGESTIVE [None]
  - CARDIAC MURMUR [None]
  - CARDIAC PACEMAKER INSERTION [None]
  - CARDIAC PACEMAKER REPLACEMENT [None]
  - CAROTID BRUIT [None]
  - CEREBROVASCULAR ACCIDENT [None]
  - CONSTIPATION [None]
  - CORONARY ARTERIAL STENT INSERTION [None]
  - DECREASED APPETITE [None]
  - DEVICE ELECTRICAL FINDING [None]
  - DYSLIPIDAEMIA [None]
  - ELEVATED PACING THRESHOLD [None]
  - HYPERTENSION [None]
  - HYPERTROPHIC CARDIOMYOPATHY [None]
  - HYPOTHYROIDISM [None]
  - INTERSTITIAL LUNG DISEASE [None]
  - PACEMAKER COMPLICATION [None]
  - PAIN IN EXTREMITY [None]
  - PLEURAL EFFUSION [None]
  - POST PROCEDURAL COMPLICATION [None]
  - RASH PRURITIC [None]
  - RENAL FAILURE [None]
  - RESPIRATORY FAILURE [None]
  - RESTRICTIVE PULMONARY DISEASE [None]
  - TRICUSPID VALVE REPAIR [None]
  - TYPE 2 DIABETES MELLITUS [None]
